FAERS Safety Report 18011038 (Version 5)
Quarter: 2025Q1

REPORT INFORMATION
  Report Type: Spontaneous
  Country: US (occurrence: US)
  Receive Date: 20200711
  Receipt Date: 20250319
  Transmission Date: 20250408
  Serious: No
  Sender: BIOGEN
  Company Number: US-BIOGEN-2017BI00384849

PATIENT
  Age: 45 Year
  Sex: Female

DRUGS (2)
  1. TECFIDERA [Suspect]
     Active Substance: DIMETHYL FUMARATE
     Indication: Multiple sclerosis
     Dosage: MAINTENANCE DOSE
     Route: 050
     Dates: start: 20150806
  2. TECFIDERA [Suspect]
     Active Substance: DIMETHYL FUMARATE
     Route: 050
     Dates: start: 20131101, end: 20140728

REACTIONS (7)
  - Intentional dose omission [Unknown]
  - Product storage error [Unknown]
  - Illness [Unknown]
  - Alopecia [Not Recovered/Not Resolved]
  - Rhinorrhoea [Not Recovered/Not Resolved]
  - Flushing [Unknown]
  - Pruritus [Unknown]

NARRATIVE: CASE EVENT DATE: 20170405
